FAERS Safety Report 11501466 (Version 1)
Quarter: 2015Q3

REPORT INFORMATION
  Report Type: Spontaneous
  Country: BR (occurrence: BR)
  Receive Date: 20150914
  Receipt Date: 20150914
  Transmission Date: 20151125
  Serious: Yes (Other)
  Sender: FDA-Public Use
  Company Number: BR-VALIDUS PHARMACEUTICALS LLC-BR-2015VAL000567

PATIENT

DRUGS (1)
  1. PARLODEL [Suspect]
     Active Substance: BROMOCRIPTINE MESYLATE
     Indication: CARCINOID TUMOUR
     Dosage: 1 TABLET A DAY
     Route: 048

REACTIONS (4)
  - Hormone level abnormal [Recovering/Resolving]
  - Off label use [Unknown]
  - Deafness [Not Recovered/Not Resolved]
  - Visual acuity reduced [Recovering/Resolving]
